FAERS Safety Report 24560561 (Version 1)
Quarter: 2024Q4

REPORT INFORMATION
  Report Type: Spontaneous
  Country: US (occurrence: None)
  Receive Date: 20241028
  Receipt Date: 20241028
  Transmission Date: 20250115
  Serious: Yes (Hospitalization)
  Sender: Public
  Company Number: None

PATIENT
  Age: 62 Year
  Sex: Male
  Weight: 101 kg

DRUGS (2)
  1. CARFILZOMIB [Suspect]
     Active Substance: CARFILZOMIB
     Indication: Cardiac failure congestive
     Dosage: OTHER FREQUENCY : QWEEK;?
     Route: 042
     Dates: start: 20231221, end: 20240503
  2. UNSPECIFIED INGREDIENT [Suspect]
     Active Substance: UNSPECIFIED INGREDIENT

REACTIONS (3)
  - Palpitations [None]
  - Peripheral swelling [None]
  - Tachypnoea [None]

NARRATIVE: CASE EVENT DATE: 20240503
